FAERS Safety Report 15863813 (Version 1)
Quarter: 2019Q1

REPORT INFORMATION
  Report Type: Spontaneous
  Country: US (occurrence: US)
  Receive Date: 20190124
  Receipt Date: 20190124
  Transmission Date: 20190417
  Serious: No
  Sender: FDA-Public Use
  Company Number: US-ENDO PHARMACEUTICALS INC-2018-020131

PATIENT
  Sex: Female

DRUGS (1)
  1. TESTOSTERONE. [Suspect]
     Active Substance: TESTOSTERONE
     Indication: BLOOD TESTOSTERONE DECREASED
     Dosage: RUB A PEARL SIZE AMOUNT OF MEDICATION INTO BODY DAILY
     Route: 065

REACTIONS (3)
  - Off label use [Unknown]
  - Blood testosterone increased [Unknown]
  - Wrong technique in product usage process [Unknown]
